FAERS Safety Report 12182906 (Version 1)
Quarter: 2016Q1

REPORT INFORMATION
  Report Type: Spontaneous
  Country: US (occurrence: None)
  Receive Date: 20160315
  Receipt Date: 20160315
  Transmission Date: 20160526
  Serious: Yes (Hospitalization)
  Sender: FDA-Public Use
  Company Number: None

PATIENT
  Age: 59 Year
  Sex: Female
  Weight: 95.1 kg

DRUGS (1)
  1. WARFARIN [Suspect]
     Active Substance: WARFARIN

REACTIONS (4)
  - International normalised ratio increased [None]
  - Adenocarcinoma [None]
  - Vaginal haemorrhage [None]
  - Retroperitoneal haematoma [None]

NARRATIVE: CASE EVENT DATE: 20151111
